FAERS Safety Report 10306402 (Version 1)
Quarter: 2014Q3

REPORT INFORMATION
  Report Type: Spontaneous
  Country: HK (occurrence: HK)
  Receive Date: 20140715
  Receipt Date: 20140715
  Transmission Date: 20150326
  Serious: Yes (Death, Other)
  Sender: FDA-Public Use
  Company Number: HK-WATSON-2014-15350

PATIENT
  Age: 58 Year
  Sex: Male

DRUGS (1)
  1. GENTAMICIN [Suspect]
     Active Substance: GENTAMICIN
     Indication: ANTIBIOTIC PROPHYLAXIS
     Dosage: UNK
     Route: 061
     Dates: start: 200611

REACTIONS (2)
  - Mycobacterial peritonitis [Fatal]
  - Mycobacterium abscessus infection [Not Recovered/Not Resolved]

NARRATIVE: CASE EVENT DATE: 20071003
